FAERS Safety Report 6185120-6 (Version None)
Quarter: 2009Q2

REPORT INFORMATION
  Report Type: 
  Country: None (occurrence: None)
  Receive Date: 20090507
  Receipt Date: 20090428
  Transmission Date: 20091009
  Serious: Yes (Death)
  Sender: FDA-Public Use
  Company Number: WAES 0908CAN00006

PATIENT
  Age: 45 Year
  Sex: Male

DRUGS (4)
  1. HYZAAR [Suspect]
     Indication: HYPERTENSION
     Dosage: 50-12.5 MG/DAILY PO
     Route: 048
     Dates: start: 20080627, end: 20080717
  2. AMITRIPTYLINE HYDROCHLORIDE [Concomitant]
  3. LITHIUM CARBONATE [Concomitant]
  4. RISPERIDONE [Concomitant]

REACTIONS (1)
  - COMPLETED SUICIDE [None]
